FAERS Safety Report 10146751 (Version 1)
Quarter: 2014Q2

REPORT INFORMATION
  Report Type: Spontaneous
  Country: FR (occurrence: FR)
  Receive Date: 20140501
  Receipt Date: 20140501
  Transmission Date: 20141212
  Serious: Yes (Other)
  Sender: FDA-Public Use
  Company Number: FR-GILEAD-2014-0100870

PATIENT
  Sex: Male

DRUGS (2)
  1. VIREAD [Suspect]
     Indication: HIV TEST POSITIVE
     Dosage: UNK
     Route: 048
     Dates: start: 20050315, end: 20131121
  2. KIVEXA [Concomitant]

REACTIONS (1)
  - Nephropathy toxic [Recovered/Resolved]
